FAERS Safety Report 4977886-5 (Version None)
Quarter: 2006Q2

REPORT INFORMATION
  Report Type: 
  Country: None (occurrence: None)
  Receive Date: 20060420
  Receipt Date: 20060410
  Transmission Date: 20061013
  Serious: Yes (Death)
  Sender: FDA-Public Use
  Company Number: IE-AVENTIS-200612185EU

PATIENT
  Age: 92 Year
  Sex: Male

DRUGS (2)
  1. ENOXAPARIN SODIUM [Suspect]
     Indication: ACUTE CORONARY SYNDROME
     Route: 058
     Dates: start: 20060101, end: 20060101
  2. ENOXAPARIN SODIUM [Suspect]
     Indication: MYOCARDIAL INFARCTION
     Route: 058
     Dates: start: 20060101, end: 20060101

REACTIONS (4)
  - ABDOMINAL DISTENSION [None]
  - CONTUSION [None]
  - HYPERSENSITIVITY [None]
  - MYOCARDIAL INFARCTION [None]
